FAERS Safety Report 5533481-0 (Version None)
Quarter: 2007Q4

REPORT INFORMATION
  Report Type: 
  Country: None (occurrence: None)
  Receive Date: 20071204
  Receipt Date: 20071203
  Transmission Date: 20080405
  Serious: Yes (Other)
  Sender: FDA-Public Use
  Company Number: JP-BRISTOL-MYERS SQUIBB COMPANY-14002125

PATIENT
  Age: 59 Year
  Sex: Male
  Weight: 67 kg

DRUGS (9)
  1. CISPLATIN [Suspect]
     Indication: PLEURAL MESOTHELIOMA MALIGNANT
     Dosage: THERAPYDATE: 19-APR-07 TO 12-JUL-07,135MG,INTRAVENOUS,85DAYS.
     Route: 042
     Dates: start: 20070831
  2. PEMETREXED DISODIUM [Suspect]
     Indication: PLEURAL MESOTHELIOMA MALIGNANT
     Dosage: THERAPYDATE: 19-APR-07 TO 12-JUL-07,85DAYS, 900MG, INTRAVENOUS.
     Route: 042
     Dates: start: 20070831
  3. PANVITAN [Concomitant]
     Dates: start: 20070409, end: 20071104
  4. HYDROXOCOBALAMIN ACETATE [Concomitant]
  5. DECADRON [Concomitant]
     Dosage: ALSO ON 19-APR-2007 TO 10-OCT-2007.
     Dates: start: 20070420, end: 20071103
  6. LOXONIN [Concomitant]
     Dates: start: 20070423, end: 20071103
  7. MOBIC [Concomitant]
     Dates: start: 20070817, end: 20070914
  8. OXYCONTIN [Concomitant]
     Dosage: TABLET
     Dates: start: 20070824, end: 20071103
  9. ANPEC [Concomitant]
     Dosage: SUPPOSITORY
     Dates: start: 20070828, end: 20071103

REACTIONS (2)
  - HYPERKALAEMIA [None]
  - RENAL IMPAIRMENT [None]
